FAERS Safety Report 21441384 (Version 2)
Quarter: 2022Q4

REPORT INFORMATION
  Report Type: Spontaneous
  Country: US (occurrence: US)
  Receive Date: 20221011
  Receipt Date: 20221014
  Transmission Date: 20230113
  Serious: No
  Sender: FDA-Public Use
  Company Number: US-PFIZER INC-202201212584

PATIENT
  Age: 70 Year
  Sex: Female
  Weight: 60.33 kg

DRUGS (1)
  1. PAXLOVID [Suspect]
     Active Substance: NIRMATRELVIR\RITONAVIR
     Indication: COVID-19 treatment
     Dosage: UNKNOWN DOSAGE ONCE A DAY
     Route: 048
     Dates: start: 20220912, end: 20220916

REACTIONS (5)
  - Off label use [Unknown]
  - COVID-19 [Unknown]
  - Disease recurrence [Unknown]
  - COVID-19 [Unknown]
  - Feeling abnormal [Not Recovered/Not Resolved]

NARRATIVE: CASE EVENT DATE: 20220923
